FAERS Safety Report 18553437 (Version 7)
Quarter: 2023Q4

REPORT INFORMATION
  Report Type: Spontaneous
  Country: US (occurrence: US)
  Receive Date: 20201127
  Receipt Date: 20231020
  Transmission Date: 20240109
  Serious: Yes (Other)
  Sender: FDA-Public Use
  Company Number: US-PFIZER INC-2020468123

PATIENT
  Age: 79 Year
  Sex: Male

DRUGS (1)
  1. XELJANZ [Suspect]
     Active Substance: TOFACITINIB CITRATE
     Dosage: UNK

REACTIONS (6)
  - Thrombosis [Unknown]
  - Heart transplant [Unknown]
  - Pain [Unknown]
  - Frustration tolerance decreased [Unknown]
  - Hypertension [Unknown]
  - Restless legs syndrome [Unknown]
